FAERS Safety Report 10037937 (Version 1)
Quarter: 2014Q1

REPORT INFORMATION
  Report Type: Spontaneous
  Country: GB (occurrence: None)
  Receive Date: 20140321
  Receipt Date: 20140321
  Transmission Date: 20141002
  Serious: Yes (Other)
  Sender: FDA-Public Use
  Company Number: FK201400859

PATIENT
  Age: 63 Year
  Sex: Female
  Weight: 111 kg

DRUGS (8)
  1. FUROSEMIDE (MANUFACTURER UNKNOWN) (FUROSEMIDE) (FUROSEMIDE) [Suspect]
     Indication: HYPERTENSION
     Route: 048
     Dates: start: 20130805
  2. ALLOPURINOL (ALLOPURINOL) [Suspect]
     Indication: GOUT
     Route: 048
     Dates: start: 20131206
  3. AMLODIPINE (AMLODIPINE) [Suspect]
     Indication: HYPERTENSION
     Route: 048
     Dates: start: 20130805
  4. BISOPROLOL FUMARATE [Suspect]
     Indication: HYPERTENSION
     Route: 048
     Dates: start: 20130807
  5. EPLERENONE [Suspect]
     Indication: HYPERTENSION
     Route: 048
     Dates: start: 20130805
  6. RAMIPRIL (RAMIPRIL) [Suspect]
     Indication: HYPERTENSION
     Route: 048
     Dates: start: 20130806
  7. LEVOTHYROXINE [Concomitant]
  8. COLCHICINE [Concomitant]

REACTIONS (13)
  - Drug prescribing error [None]
  - Cough [None]
  - Muscle spasms [None]
  - Depression [None]
  - Diarrhoea [None]
  - Dizziness [None]
  - Feeling abnormal [None]
  - Arthralgia [None]
  - Asthenia [None]
  - Myalgia [None]
  - Muscle twitching [None]
  - Nausea [None]
  - Fatigue [None]
